FAERS Safety Report 7124159-0 (Version None)
Quarter: 2010Q4

REPORT INFORMATION
  Report Type: 
  Country: None (occurrence: None)
  Receive Date: 20101126
  Receipt Date: 20101001
  Transmission Date: 20110411
  Serious: Yes (Other)
  Sender: FDA-Public Use
  Company Number: DK-PFIZER INC-2010157670

PATIENT

DRUGS (3)
  1. SUNITINIB MALATE [Suspect]
     Indication: METASTATIC RENAL CELL CARCINOMA
     Dosage: 25-50 MG 4/2 SCHEDULE
     Route: 048
  2. ZOLEDRONIC ACID [Suspect]
     Indication: HYPERCALCAEMIA
     Dosage: 4 MG, EVERY 6 WEEKS
  3. ZOLEDRONIC ACID [Suspect]
     Indication: PROPHYLAXIS

REACTIONS (1)
  - OSTEONECROSIS OF JAW [None]
